FAERS Safety Report 8119678-4 (Version None)
Quarter: 2012Q1

REPORT INFORMATION
  Report Type: 
  Country: None (occurrence: None)
  Receive Date: 20120203
  Receipt Date: 20120117
  Transmission Date: 20120608
  Serious: Yes (Other)
  Sender: FDA-Public Use
  Company Number: JPI-P-019175

PATIENT
  Age: 50 Year
  Sex: Male
  Weight: 88.4514 kg

DRUGS (2)
  1. XYREM [Suspect]
     Indication: INSOMNIA
     Dosage: (UNKNOWN), ORAL, 4 GM (4 GM, 1 IN 1 D), ORAL
     Route: 048
     Dates: start: 20100112
  2. SIMVASTATIN [Concomitant]

REACTIONS (3)
  - WEIGHT INCREASED [None]
  - BLOOD PRESSURE INCREASED [None]
  - STRESS [None]
